FAERS Safety Report 12698628 (Version 1)
Quarter: 2016Q3

REPORT INFORMATION
  Report Type: Spontaneous
  Country: CN (occurrence: CN)
  Receive Date: 20160830
  Receipt Date: 20160830
  Transmission Date: 20161109
  Serious: Yes (Other)
  Sender: FDA-Public Use
  Company Number: CN-ABBVIE-16P-035-1714119-00

PATIENT
  Age: 28 Year
  Sex: Female

DRUGS (2)
  1. DEPAKINE [Suspect]
     Active Substance: VALPROATE SODIUM
     Indication: EPILEPSY
     Route: 041
     Dates: start: 20160305, end: 20160328
  2. DEPAKINE [Suspect]
     Active Substance: VALPROATE SODIUM
     Dosage: ORAL SOLUTION
     Route: 042
     Dates: start: 20160305, end: 20160328

REACTIONS (1)
  - Hepatic enzyme increased [Recovering/Resolving]

NARRATIVE: CASE EVENT DATE: 20160322
